FAERS Safety Report 9209114 (Version 1)
Quarter: 2013Q2

REPORT INFORMATION
  Report Type: Spontaneous
  Country: US (occurrence: US)
  Receive Date: 20130404
  Receipt Date: 20130404
  Transmission Date: 20140414
  Serious: Yes (Other)
  Sender: FDA-Public Use
  Company Number: PHEH2013US007205

PATIENT
  Sex: Female

DRUGS (5)
  1. EXFORGE [Suspect]
     Dosage: 1 DF 10/320 MG) QD
     Route: 048
  2. LISINOPRIL [Suspect]
     Dosage: UNK UKN, UNK
  3. CRESTOR [Suspect]
     Dosage: 2 MG, UNK
  4. FISH OIL [Concomitant]
     Dosage: UNK UKN, UNK
  5. SUPARTZ [Concomitant]
     Dosage: UNK UKN, UNK

REACTIONS (5)
  - Asthma [Unknown]
  - Dyspnoea [Unknown]
  - Dyspepsia [Unknown]
  - Myalgia [Unknown]
  - Blood pressure inadequately controlled [Unknown]
